FAERS Safety Report 10897808 (Version 1)
Quarter: 2015Q1

REPORT INFORMATION
  Report Type: Spontaneous
  Country: DE (occurrence: DE)
  Receive Date: 20150309
  Receipt Date: 20150309
  Transmission Date: 20150721
  Serious: Yes (Other)
  Sender: FDA-Public Use
  Company Number: DE-ACTAVIS-2015-03884

PATIENT
  Age: 29 Year
  Sex: Female

DRUGS (3)
  1. CLOZAPINE (UNKNOWN) [Suspect]
     Active Substance: CLOZAPINE
     Indication: SCHIZOPHRENIA
     Dosage: 250 MG, DAILY
     Route: 065
  2. FLUVOXAMINE (UNKNOWN) [Interacting]
     Active Substance: FLUVOXAMINE
     Indication: SCHIZOPHRENIA
     Dosage: 50 MG, DAILY
     Route: 065
  3. OLANZAPINE (UNKNOWN) [Interacting]
     Active Substance: OLANZAPINE
     Indication: SLEEP DISORDER
     Dosage: 20 MG, DAILY
     Route: 065

REACTIONS (7)
  - Dry mouth [Recovered/Resolved]
  - Antipsychotic drug level above therapeutic [Recovered/Resolved]
  - Obsessive-compulsive disorder [Recovered/Resolved]
  - Overweight [Unknown]
  - Constipation [Recovered/Resolved]
  - Vision blurred [Recovered/Resolved]
  - Drug interaction [Not Recovered/Not Resolved]
